FAERS Safety Report 4410533-X (Version None)
Quarter: 2004Q3

REPORT INFORMATION
  Report Type: 
  Country: None (occurrence: None)
  Receive Date: 20040726
  Receipt Date: 20040719
  Transmission Date: 20050211
  Serious: Yes (Other)
  Sender: FDA-Public Use
  Company Number: 2004UW14977

PATIENT
  Age: 85 Year
  Sex: Female

DRUGS (2)
  1. SEROQUEL [Suspect]
     Indication: DELIRIUM
     Dosage: 25 MG PO
     Route: 048
  2. RISPERDAL [Concomitant]

REACTIONS (2)
  - NEUTROPHIL COUNT DECREASED [None]
  - WHITE BLOOD CELL COUNT DECREASED [None]
